FAERS Safety Report 7754759-6 (Version None)
Quarter: 2011Q3

REPORT INFORMATION
  Report Type: 
  Country: None (occurrence: None)
  Receive Date: 20110916
  Receipt Date: 20110908
  Transmission Date: 20111222
  Serious: Yes (Death, Hospitalization, Other)
  Sender: FDA-Public Use
  Company Number: US-BIOGENIDEC-2010BI023835

PATIENT
  Age: 64 Year
  Sex: Female
  Weight: 58 kg

DRUGS (7)
  1. CALCITONIN SALMON [Concomitant]
  2. VITAMIN B [Concomitant]
  3. VITAMIN D [Concomitant]
  4. TYSABRI [Suspect]
     Indication: MULTIPLE SCLEROSIS
     Route: 042
     Dates: start: 20080730, end: 20100830
  5. FOSAMAX [Concomitant]
  6. VITAMIN B-12 [Concomitant]
  7. ASCORBIC ACID [Concomitant]

REACTIONS (11)
  - DEATH [None]
  - SPEECH DISORDER [None]
  - MULTIPLE SCLEROSIS [None]
  - CONVULSION [None]
  - MUSCULOSKELETAL DISORDER [None]
  - WEIGHT DECREASED [None]
  - MULTIPLE SCLEROSIS RELAPSE [None]
  - COGNITIVE DISORDER [None]
  - PROGRESSIVE MULTIFOCAL LEUKOENCEPHALOPATHY [None]
  - CEREBROVASCULAR ACCIDENT [None]
  - IMMUNE RECONSTITUTION SYNDROME [None]
